FAERS Safety Report 8511082-X (Version None)
Quarter: 2012Q3

REPORT INFORMATION
  Report Type: 
  Country: None (occurrence: None)
  Receive Date: 20120705
  Receipt Date: 20120620
  Transmission Date: 20120928
  Serious: Yes (Hospitalization)
  Sender: FDA-Public Use
  Company Number: LMI-2012-00209

PATIENT
  Age: 66 Year
  Sex: Male
  Weight: 87.5442 kg

DRUGS (13)
  1. CELEBREX [Concomitant]
  2. LOTREL [Concomitant]
  3. ASCORBIC ACID [Concomitant]
  4. LOPRESSOR [Concomitant]
  5. AMBIEN [Concomitant]
  6. CARDIOLITE [Suspect]
     Indication: CONGESTIVE CARDIOMYOPATHY
     Dosage: INTRAVENOUS BOLUS
     Route: 040
     Dates: start: 20120613, end: 20120613
  7. CARDIOLITE [Suspect]
     Indication: ATRIAL FIBRILLATION
     Dosage: INTRAVENOUS BOLUS
     Route: 040
     Dates: start: 20120613, end: 20120613
  8. CARDIOLITE [Suspect]
     Indication: CARDIAC STRESS TEST
     Dosage: INTRAVENOUS BOLUS
     Route: 040
     Dates: start: 20120613, end: 20120613
  9. COUMADIN [Concomitant]
  10. LIPITOR [Concomitant]
  11. PRILOSEC [Concomitant]
  12. VITAMIN E [Concomitant]
  13. THERAGRAN (ERGOCALCIFEROL, ASCORBIC ACID, PYRIDOXINE HYDROCHLORIDE, TH [Concomitant]

REACTIONS (4)
  - HYDRONEPHROSIS [None]
  - URINARY TRACT INFECTION [None]
  - HAEMATURIA [None]
  - NEPHROLITHIASIS [None]
